FAERS Safety Report 9781149 (Version 2)
Quarter: 2014Q1

REPORT INFORMATION
  Report Type: Spontaneous
  Country: US (occurrence: US)
  Receive Date: 20131224
  Receipt Date: 20140113
  Transmission Date: 20141002
  Serious: Yes (Death)
  Sender: FDA-Public Use
  Company Number: US-AMGEN-USASP2013089364

PATIENT
  Age: 97 Year
  Sex: Female
  Weight: 53.97 kg

DRUGS (1)
  1. PROLIA [Suspect]
     Indication: PRODUCT USED FOR UNKNOWN INDICATION
     Dosage: UNK
     Route: 065
     Dates: end: 20130719

REACTIONS (2)
  - Aortic stenosis [Fatal]
  - Cardiac failure congestive [Fatal]
